FAERS Safety Report 4645104-3 (Version None)
Quarter: 2005Q2

REPORT INFORMATION
  Report Type: 
  Country: None (occurrence: None)
  Receive Date: 20050422
  Receipt Date: 20050415
  Transmission Date: 20051028
  Serious: Yes (Hospitalization)
  Sender: FDA-Public Use
  Company Number: 2005047202

PATIENT
  Sex: Male
  Weight: 63.5036 kg

DRUGS (3)
  1. LIPITOR [Suspect]
     Indication: BLOOD CHOLESTEROL INCREASED
     Dosage: 20 MG (20 MG, 1 IN 1 D), ORAL
     Route: 048
  2. LOSARTAN POTASSIUM [Concomitant]
  3. ATENOLOL [Concomitant]

REACTIONS (4)
  - ENZYME ABNORMALITY [None]
  - FEELING ABNORMAL [None]
  - HYPERTENSION [None]
  - MUSCLE SPASMS [None]
